FAERS Safety Report 25844926 (Version 1)
Quarter: 2025Q3

REPORT INFORMATION
  Report Type: Other
  Country: GB (occurrence: GB)
  Receive Date: 20250925
  Receipt Date: 20250925
  Transmission Date: 20251021
  Serious: Yes (Other)
  Sender: GLENMARK
  Company Number: None

PATIENT
  Age: 13 Year
  Sex: Female

DRUGS (3)
  1. ATOMOXETINE [Suspect]
     Active Substance: ATOMOXETINE
     Indication: Attention deficit hyperactivity disorder
     Dosage: 60 MILLIGRAM, OD, 60MG ONCE AT 4PM (1.15MG/KG/DAY)
     Route: 065
     Dates: start: 202502
  2. ATOMOXETINE [Suspect]
     Active Substance: ATOMOXETINE
     Dosage: 60 MILLIGRAM, QD (ATOMOXETINE 60MG ONCE AT 4PM (1.15MG/KG/DAY))
     Route: 065
     Dates: start: 202504
  3. ATOMOXETINE [Suspect]
     Active Substance: ATOMOXETINE
     Route: 065

REACTIONS (3)
  - Polymenorrhoea [Recovered/Resolved]
  - Syncope [Recovered/Resolved]
  - Malaise [Recovered/Resolved]
